FAERS Safety Report 5270407-1 (Version None)
Quarter: 2007Q1

REPORT INFORMATION
  Report Type: 
  Country: None (occurrence: None)
  Receive Date: 20070314
  Receipt Date: 20070228
  Transmission Date: 20070707
  Serious: Yes (Death)
  Sender: FDA-Public Use
  Company Number: RENA-12134

PATIENT
  Age: 66 Year
  Sex: Male

DRUGS (1)
  1. RENAGEL [Suspect]
     Indication: HYPERPHOSPHATAEMIA

REACTIONS (1)
  - CARDIOVASCULAR DISORDER [None]
